FAERS Safety Report 8084125-8 (Version None)
Quarter: 2012Q1

REPORT INFORMATION
  Report Type: 
  Country: None (occurrence: None)
  Receive Date: 20120128
  Receipt Date: 20110128
  Transmission Date: 20120608
  Serious: No
  Sender: FDA-Public Use
  Company Number: US-ABBOTT-11P-163-0701055-00

PATIENT
  Age: 54 Year
  Sex: Female

DRUGS (17)
  1. METHOTREXATE [Concomitant]
     Indication: RHEUMATOID ARTHRITIS
     Dosage: 2.5MG 8 PILLS WEEKLY
  2. EFFEXOR XR [Concomitant]
     Indication: MOOD SWINGS
  3. CENTRUM [Concomitant]
     Indication: PRODUCT USED FOR UNKNOWN INDICATION
     Dosage: 1 TAB DAILY
     Route: 048
  4. FISH OIL [Concomitant]
     Indication: PRODUCT USED FOR UNKNOWN INDICATION
     Dosage: 1200 MG DAILY
     Route: 048
  5. FERROUS GLUCONATE [Concomitant]
     Indication: ANAEMIA
     Dosage: 1 TAB DAILY
     Route: 048
  6. MELOXICAM [Concomitant]
     Indication: RHEUMATOID ARTHRITIS
     Dosage: 60MG DAILY
     Route: 048
  7. VITAMIN B-12 [Concomitant]
     Indication: PRODUCT USED FOR UNKNOWN INDICATION
     Dosage: 1000 MCG DAILY
     Route: 048
  8. HYDROCODONE BITARTRATE [Concomitant]
     Indication: PAIN
     Dosage: 7.5/500MG AS NEEDED (MAYBE 1X A MONTH)
  9. XANAX [Concomitant]
     Indication: MOOD SWINGS
     Dosage: 0.5 MG DAILY
     Route: 048
  10. HUMIRA [Suspect]
     Indication: RHEUMATOID ARTHRITIS
     Dates: start: 20100201
  11. PLAQUENIL [Concomitant]
     Indication: RHEUMATOID ARTHRITIS
     Dosage: 200MG 2 TABS DAILY
     Route: 048
  12. TERAZOSIN HCL [Concomitant]
     Indication: BLOOD PRESSURE ABNORMAL
     Dosage: 5MG 2 TABS DAILY
     Route: 048
  13. TRAZODONE HCL [Concomitant]
     Indication: INSOMNIA
     Dosage: 50 MG DAILY
     Route: 048
  14. FOLIC ACID [Concomitant]
     Indication: PRODUCT USED FOR UNKNOWN INDICATION
     Dosage: 1MG-2 PILLS/DAY (EXTRA PILL WITH MTX)
  15. CALTRATE WITH VITAMIN D [Concomitant]
     Indication: PRODUCT USED FOR UNKNOWN INDICATION
     Dosage: 2 TABS DAILY
     Route: 048
  16. PREDNISONE TAB [Concomitant]
     Indication: RHEUMATOID ARTHRITIS
     Dosage: 2.5MG DAILY
  17. EFFEXOR XR [Concomitant]
     Indication: DEPRESSION
     Dosage: 75MG. 3 TABS A DAY

REACTIONS (2)
  - PAIN [None]
  - LIQUID PRODUCT PHYSICAL ISSUE [None]
